FAERS Safety Report 18049630 (Version 2)
Quarter: 2020Q3

REPORT INFORMATION
  Report Type: Spontaneous
  Country: JP (occurrence: JP)
  Receive Date: 20200721
  Receipt Date: 20200806
  Transmission Date: 20201103
  Serious: Yes (Death, Other)
  Sender: FDA-Public Use
  Company Number: JP-MYLANLABS-2020M1065727

PATIENT
  Age: 25 Year
  Sex: Female

DRUGS (6)
  1. PREDNISOLONE. [Concomitant]
     Active Substance: PREDNISOLONE
     Dosage: UNK
  2. URSO [Concomitant]
     Active Substance: URSODIOL
     Dosage: UNK
  3. LENDORMIN [Concomitant]
     Active Substance: BROTIZOLAM
     Dosage: UNK
  4. OMEPRAZON [Concomitant]
     Active Substance: OMEPRAZOLE
     Dosage: UNK
  5. FLUCONAZOLE. [Concomitant]
     Active Substance: FLUCONAZOLE
     Dosage: UNK
  6. ACICLOVIR [Suspect]
     Active Substance: ACYCLOVIR
     Indication: PRODUCT USED FOR UNKNOWN INDICATION
     Dosage: 400 MILLIGRAM, QD
     Route: 048
     Dates: start: 2017

REACTIONS (8)
  - Death [Fatal]
  - Platelet count decreased [Unknown]
  - Product use issue [Unknown]
  - Hepatomegaly [Unknown]
  - Fungal infection [Unknown]
  - White blood cell count decreased [Unknown]
  - Disease recurrence [Unknown]
  - Incorrect product administration duration [Unknown]

NARRATIVE: CASE EVENT DATE: 202003
